FAERS Safety Report 7087322-3 (Version None)
Quarter: 2010Q4

REPORT INFORMATION
  Report Type: 
  Country: None (occurrence: None)
  Receive Date: 20101108
  Receipt Date: 20101028
  Transmission Date: 20110411
  Serious: Yes (Hospitalization)
  Sender: FDA-Public Use
  Company Number: US-BIOGENIDEC-2010BI023050

PATIENT
  Age: 55 Year
  Sex: Female
  Weight: 111 kg

DRUGS (6)
  1. TYSABRI [Suspect]
     Indication: MULTIPLE SCLEROSIS
     Route: 042
     Dates: start: 20071001
  2. FUROSEMIDE [Concomitant]
     Indication: OEDEMA PERIPHERAL
  3. URSO 250 [Concomitant]
     Indication: BILIARY CIRRHOSIS PRIMARY
     Dates: start: 20070101
  4. NEURONTIN [Concomitant]
     Indication: PAIN IN EXTREMITY
     Dates: start: 19990101
  5. CATAPRES-TTS-1 [Concomitant]
     Indication: HYPERHIDROSIS
     Dates: start: 20070101
  6. BACLOFEN [Concomitant]
     Indication: DYSKINESIA
     Dates: start: 20020101

REACTIONS (19)
  - ABDOMINAL PAIN UPPER [None]
  - COLITIS [None]
  - DIABETES MELLITUS [None]
  - DIARRHOEA [None]
  - DYSPHONIA [None]
  - FALL [None]
  - GASTROOESOPHAGEAL REFLUX DISEASE [None]
  - HEADACHE [None]
  - MULTIPLE SCLEROSIS [None]
  - MULTIPLE SCLEROSIS RELAPSE [None]
  - NASAL CONGESTION [None]
  - NASOPHARYNGITIS [None]
  - NAUSEA [None]
  - OSTEOPOROSIS [None]
  - SNEEZING [None]
  - STOMATITIS [None]
  - STRESS [None]
  - TONGUE ULCERATION [None]
  - WEIGHT INCREASED [None]
